FAERS Safety Report 8524280-6 (Version None)
Quarter: 2012Q3

REPORT INFORMATION
  Report Type: 
  Country: None (occurrence: None)
  Receive Date: 20120720
  Receipt Date: 20120713
  Transmission Date: 20120928
  Serious: Yes (Other)
  Sender: FDA-Public Use
  Company Number: US-ABBOTT-11P-163-0849789-00

PATIENT
  Sex: Female

DRUGS (7)
  1. IBUPROFEN [Concomitant]
     Dosage: DAILY
  2. TRAMADOL HYDROCHLORIDE [Concomitant]
     Dosage: DAILY AT BEDTIME
  3. BACLOFEN [Concomitant]
     Indication: BACK PAIN
     Dosage: WEANED OFF
  4. GABAPENTIN [Concomitant]
     Indication: BACK PAIN
     Dosage: WEANED OFF
  5. IBUPROFEN [Concomitant]
     Indication: PRODUCT USED FOR UNKNOWN INDICATION
     Dosage: 2-3 TIMES DAILY
  6. TRAMADOL HYDROCHLORIDE [Concomitant]
     Indication: PRODUCT USED FOR UNKNOWN INDICATION
  7. HUMIRA [Suspect]
     Indication: PSORIATIC ARTHROPATHY
     Dates: start: 20101201, end: 20110701

REACTIONS (5)
  - PSORIASIS [None]
  - SPINAL CORD DISORDER [None]
  - SPINA BIFIDA [None]
  - GAIT DISTURBANCE [None]
  - BACK PAIN [None]
